FAERS Safety Report 7453962-2 (Version None)
Quarter: 2011Q2

REPORT INFORMATION
  Report Type: 
  Country: None (occurrence: None)
  Receive Date: 20110502
  Receipt Date: 20110328
  Transmission Date: 20111010
  Serious: No
  Sender: FDA-Public Use
  Company Number: US-BAYER-2011-026986

PATIENT
  Age: 32 Year
  Sex: Female

DRUGS (4)
  1. SINGULAIR [Concomitant]
  2. ALLEGRA D 24 HOUR [Concomitant]
  3. AVELOX [Suspect]
     Indication: UPPER RESPIRATORY TRACT INFECTION
     Dosage: 400 MG, QD
     Route: 048
     Dates: start: 20110320, end: 20110325
  4. NASONEX [Concomitant]

REACTIONS (2)
  - DIARRHOEA [None]
  - VOMITING [None]
